FAERS Safety Report 4322850-2 (Version None)
Quarter: 2004Q1

REPORT INFORMATION
  Report Type: 
  Country: None (occurrence: None)
  Receive Date: 20040322
  Receipt Date: 20040316
  Transmission Date: 20041129
  Serious: Yes (Hospitalization)
  Sender: FDA-Public Use
  Company Number: THQ2004A00150

PATIENT
  Age: 85 Year
  Sex: Male

DRUGS (7)
  1. LANSOPRAZOLE [Suspect]
     Dosage: 1 DF (1 DF, 1 IN 1 D)
     Route: 048
     Dates: end: 20040104
  2. ATACAND [Suspect]
     Route: 048
     Dates: end: 20040104
  3. COLOPRIV (MEBEVERINE HYDROCHLORIDE ) PREPARATION FOR ORAL USE (NOS)) [Suspect]
     Route: 048
     Dates: end: 20040104
  4. DI-ANTALVIC (APOREX) (CAPSULES) [Suspect]
     Dosage: 4 DF (4 DF, 1 IN  1 D)
     Route: 048
     Dates: end: 20040104
  5. LEXOMIL (BROMAZEPAM) (PREPARATION FOR ORAL USE (NOS)) [Suspect]
     Dosage: 1 DF (1 DF, 1 IN  1 D)
     Route: 048
     Dates: end: 20040104
  6. VIOXX [Suspect]
     Dosage: 1 DF (1 DF, 1 IN 1 D)
     Route: 048
     Dates: end: 20040104
  7. LORAZEPAM [Concomitant]

REACTIONS (2)
  - FALL [None]
  - HALLUCINATION, VISUAL [None]
